FAERS Safety Report 7214948-6 (Version None)
Quarter: 2011Q1

REPORT INFORMATION
  Report Type: 
  Country: None (occurrence: None)
  Receive Date: 20110107
  Receipt Date: 20100602
  Transmission Date: 20110831
  Serious: No
  Sender: FDA-Public Use
  Company Number: A0862445A

PATIENT
  Age: 60 Year
  Sex: Female

DRUGS (7)
  1. PHENOBARBITAL [Concomitant]
  2. DILANTIN [Concomitant]
  3. CLONAZEPAM [Concomitant]
  4. GLUCOPHAGE [Concomitant]
  5. ACETAMINOPHEN [Concomitant]
  6. LOVAZA [Suspect]
     Indication: BLOOD CHOLESTEROL INCREASED
     Dosage: 2CAP TWICE PER DAY
     Route: 048
     Dates: start: 20080101, end: 20100101
  7. MONOPRIL [Concomitant]

REACTIONS (1)
  - HYPOAESTHESIA [None]
